FAERS Safety Report 19004331 (Version 7)
Quarter: 2022Q1

REPORT INFORMATION
  Report Type: Spontaneous
  Country: PL (occurrence: PL)
  Receive Date: 20210312
  Receipt Date: 20220120
  Transmission Date: 20220423
  Serious: Yes (Life-Threatening, Hospitalization, Other)
  Sender: FDA-Public Use
  Company Number: PL-MYLANLABS-2021M1014040

PATIENT
  Age: 54 Year
  Sex: Female

DRUGS (19)
  1. AMLODIPINE [Interacting]
     Active Substance: AMLODIPINE BESYLATE
     Indication: Hypertension
     Dosage: 10 MILLIGRAM, QD (10MG/DAY)
     Route: 065
  2. ATORVASTATIN [Interacting]
     Active Substance: ATORVASTATIN
     Indication: Dyslipidaemia
     Dosage: 40 MILLIGRAM, QD (40MG/DAY)
  3. PERINDOPRIL [Interacting]
     Active Substance: PERINDOPRIL
     Indication: Hypertension
     Dosage: UNK
  4. PERINDOPRIL [Interacting]
     Active Substance: PERINDOPRIL
     Indication: Lip swelling
  5. METOPROLOL [Interacting]
     Active Substance: METOPROLOL
     Indication: Bradycardia
     Dosage: UNK
     Route: 065
  6. ROSUVASTATIN [Interacting]
     Active Substance: ROSUVASTATIN
     Indication: Product used for unknown indication
     Dosage: UNK
  7. NEBIVOLOL [Interacting]
     Active Substance: NEBIVOLOL
     Indication: Product used for unknown indication
     Dosage: 5 MILLIGRAM, QD
     Route: 065
  8. CELECOXIB [Interacting]
     Active Substance: CELECOXIB
     Indication: Back pain
     Dosage: 200 MILLIGRAM, QD
     Route: 065
  9. CELECOXIB [Interacting]
     Active Substance: CELECOXIB
     Dosage: 200 MILLIGRAM
     Route: 065
  10. CELECOXIB [Interacting]
     Active Substance: CELECOXIB
     Dosage: UNK
  11. RISPERIDONE [Interacting]
     Active Substance: RISPERIDONE
     Indication: Schizophrenia
     Dosage: 4 MILLIGRAM, QD
  12. ATORVASTATIN [Concomitant]
     Active Substance: ATORVASTATIN
     Indication: Dyslipidaemia
     Dosage: 40 MILLIGRAM, QD
  13. RISPERIDONE [Concomitant]
     Active Substance: RISPERIDONE
     Indication: Schizophrenia
     Dosage: 4 MILLIGRAM, QD
  14. NEBIVOLOL [Concomitant]
     Active Substance: NEBIVOLOL
     Indication: Hypertension
     Dosage: 5 MILLIGRAM, QD
  15. NEBIVOLOL [Concomitant]
     Active Substance: NEBIVOLOL
     Indication: Dyslipidaemia
  16. NEBIVOLOL [Concomitant]
     Active Substance: NEBIVOLOL
     Indication: Back pain
  17. GINKGO [Interacting]
     Active Substance: GINKGO
     Indication: Product used for unknown indication
     Dosage: UNK
  18. GINKGO [Interacting]
     Active Substance: GINKGO
     Indication: Somnolence
     Dosage: 240 MILLIGRAM, QD
     Route: 065
  19. GINKGO [Interacting]
     Active Substance: GINKGO
     Indication: Toxicity to various agents

REACTIONS (7)
  - Swollen tongue [Recovered/Resolved]
  - Angioedema [Unknown]
  - Lip oedema [Recovered/Resolved]
  - Drug interaction [Unknown]
  - Bradycardia [Recovered/Resolved]
  - Off label use [Unknown]
  - Tongue oedema [Recovered/Resolved]
